FAERS Safety Report 6095029-4 (Version None)
Quarter: 2009Q1

REPORT INFORMATION
  Report Type: 
  Country: None (occurrence: None)
  Receive Date: 20090227
  Receipt Date: 20080102
  Transmission Date: 20090719
  Serious: Yes (Hospitalization)
  Sender: FDA-Public Use
  Company Number: A0695395A

PATIENT
  Age: 51 Year
  Sex: Female
  Weight: 59.1 kg

DRUGS (2)
  1. LAMICTAL [Suspect]
     Indication: EPILEPSY
     Dosage: 100MG PER DAY
     Route: 048
     Dates: start: 20070101, end: 20070101
  2. DILANTIN [Concomitant]

REACTIONS (1)
  - RASH [None]
